FAERS Safety Report 9128065 (Version 2)
Quarter: 2013Q2

REPORT INFORMATION
  Report Type: Report from Study
  Country: DE (occurrence: DE)
  Receive Date: 20130228
  Receipt Date: 20130417
  Transmission Date: 20140414
  Serious: Yes (Other)
  Sender: FDA-Public Use
  Company Number: DE-JNJFOC-20130216602

PATIENT
  Age: 70 Year
  Sex: Male
  Weight: 68 kg

DRUGS (10)
  1. TAPENTADOL PR [Suspect]
     Indication: TUMOUR PAIN
     Route: 048
     Dates: start: 20120515
  2. TAPENTADOL PR [Suspect]
     Indication: BACK PAIN
     Route: 048
     Dates: start: 20120515
  3. DUROGESIC [Concomitant]
     Indication: TUMOUR PAIN
     Route: 062
  4. DUROGESIC [Concomitant]
     Indication: BACK PAIN
     Route: 062
  5. DECORTIN H [Concomitant]
     Indication: CHRONIC OBSTRUCTIVE PULMONARY DISEASE
     Route: 065
  6. VERAHEXAL [Concomitant]
     Indication: ARRHYTHMIA
     Route: 065
     Dates: start: 2005
  7. SPIRIVA [Concomitant]
     Indication: CHRONIC OBSTRUCTIVE PULMONARY DISEASE
     Route: 065
  8. TEPILTA [Concomitant]
     Indication: ABDOMINAL PAIN UPPER
     Route: 065
  9. IBUPROFEN [Concomitant]
     Indication: PAIN
     Route: 065
     Dates: start: 2011
  10. TARCEVA [Concomitant]
     Indication: BRONCHIAL CARCINOMA
     Route: 065

REACTIONS (1)
  - Bronchial carcinoma [Unknown]
